FAERS Safety Report 6742697-7 (Version None)
Quarter: 2010Q2

REPORT INFORMATION
  Report Type: 
  Country: None (occurrence: None)
  Receive Date: 20100524
  Receipt Date: 20100405
  Transmission Date: 20101027
  Serious: No
  Sender: FDA-Public Use
  Company Number: ACO_00670_2010

PATIENT
  Sex: Female
  Weight: 58.9676 kg

DRUGS (6)
  1. AMPYRA [Suspect]
     Indication: MULTIPLE SCLEROSIS
     Dosage: (10 MG BID ORAL)
     Route: 048
     Dates: start: 20100402, end: 20100404
  2. AMPYRA [Suspect]
     Indication: RESTLESS LEGS SYNDROME
     Dosage: (10 MG BID ORAL)
     Route: 048
     Dates: start: 20100402, end: 20100404
  3. LEVOXYL [Concomitant]
  4. IBUPROFEN [Concomitant]
  5. GABAPENTIN [Concomitant]
  6. VITAMIN D [Concomitant]

REACTIONS (4)
  - DIPLOPIA [None]
  - DRUG DOSE OMISSION [None]
  - INSOMNIA [None]
  - OFF LABEL USE [None]
